FAERS Safety Report 5133238-9 (Version None)
Quarter: 2006Q4

REPORT INFORMATION
  Report Type: 
  Country: None (occurrence: None)
  Receive Date: 20061018
  Receipt Date: 20061003
  Transmission Date: 20070319
  Serious: Yes (Other)
  Sender: FDA-Public Use
  Company Number: 2006122924

PATIENT
  Sex: Male

DRUGS (1)
  1. MACUGEN [Suspect]
     Indication: MACULAR DEGENERATION
     Dosage: INTRAVITREOUS
     Dates: start: 20060823

REACTIONS (1)
  - RETINAL HAEMORRHAGE [None]
